FAERS Safety Report 12680539 (Version 1)
Quarter: 2016Q3

REPORT INFORMATION
  Report Type: Report from Study
  Country: US (occurrence: US)
  Receive Date: 20160824
  Receipt Date: 20160824
  Transmission Date: 20161109
  Serious: Yes (Hospitalization, Other)
  Sender: FDA-Public Use
  Company Number: US-JNJFOC-20160811031

PATIENT
  Age: 90 Year
  Sex: Male

DRUGS (7)
  1. IMBRUVICA [Suspect]
     Active Substance: IBRUTINIB
     Indication: MANTLE CELL LYMPHOMA
     Route: 048
     Dates: start: 20160714, end: 20160715
  2. PRAVASTATIN. [Concomitant]
     Active Substance: PRAVASTATIN
  3. IMBRUVICA [Suspect]
     Active Substance: IBRUTINIB
     Indication: MANTLE CELL LYMPHOMA
     Route: 048
     Dates: start: 20160630, end: 20160713
  4. IMBRUVICA [Suspect]
     Active Substance: IBRUTINIB
     Indication: MANTLE CELL LYMPHOMA
     Route: 048
     Dates: start: 20160803
  5. LASIX [Concomitant]
     Active Substance: FUROSEMIDE
  6. TESSALON [Concomitant]
     Active Substance: BENZONATATE
  7. MAGNESIUM OXIDE. [Concomitant]
     Active Substance: MAGNESIUM OXIDE

REACTIONS (14)
  - Neoplasm malignant [Unknown]
  - Incorrect dose administered [Recovered/Resolved]
  - Haemorrhage subcutaneous [Unknown]
  - Stomach mass [Unknown]
  - Nausea [Unknown]
  - Decreased appetite [Unknown]
  - Off label use [Recovered/Resolved]
  - Listeriosis [Unknown]
  - Asthenia [Unknown]
  - Dyspnoea [Unknown]
  - Cough [Unknown]
  - Pneumonia [Unknown]
  - Haemophilus infection [Unknown]
  - Staphylococcal infection [Unknown]

NARRATIVE: CASE EVENT DATE: 2016
